FAERS Safety Report 16233591 (Version 1)
Quarter: 2019Q2

REPORT INFORMATION
  Report Type: Spontaneous
  Country: BE (occurrence: BE)
  Receive Date: 20190424
  Receipt Date: 20190424
  Transmission Date: 20190711
  Serious: Yes (Hospitalization, Other)
  Sender: FDA-Public Use
  Company Number: BE-HIKMA PHARMACEUTICALS USA INC.-BE-H14001-19-02544

PATIENT
  Age: 63 Year
  Sex: Male

DRUGS (6)
  1. PACLITAXEL. [Suspect]
     Active Substance: PACLITAXEL
     Indication: SQUAMOUS CELL CARCINOMA OF SKIN
     Dosage: ()
  2. MESNA. [Suspect]
     Active Substance: MESNA
     Indication: SQUAMOUS CELL CARCINOMA OF SKIN
     Dosage: ()
  3. CARBOPLATIN. [Suspect]
     Active Substance: CARBOPLATIN
     Indication: SQUAMOUS CELL CARCINOMA OF SKIN
     Dosage: ()
  4. IFOSFAMIDE. [Suspect]
     Active Substance: IFOSFAMIDE
     Indication: SQUAMOUS CELL CARCINOMA OF SKIN
     Dosage: BEHANDELING VAN CHEMOTHERAPIESCHEMA ELKE 3 WEKEN?DAG 1: PACLITAXEL/CARBOPLATIN/IFOSFAMIDE (+UROMI..
     Route: 042
     Dates: start: 20190215, end: 20190216
  5. XARELTO [Concomitant]
     Active Substance: RIVAROXABAN
     Indication: PRODUCT USED FOR UNKNOWN INDICATION
     Dosage: ()
  6. BISOPROLOL 5 MG [Concomitant]
     Active Substance: BISOPROLOL
     Indication: PRODUCT USED FOR UNKNOWN INDICATION
     Dosage: ()

REACTIONS (1)
  - Encephalopathy [Recovered/Resolved]

NARRATIVE: CASE EVENT DATE: 20190217
